FAERS Safety Report 14906370 (Version 1)
Quarter: 2018Q2

REPORT INFORMATION
  Report Type: Spontaneous
  Country: US (occurrence: US)
  Receive Date: 20180517
  Receipt Date: 20180517
  Transmission Date: 20180711
  Serious: Yes (Other)
  Sender: FDA-Public Use
  Company Number: US-SA-2018SA108017

PATIENT
  Age: 63 Year
  Sex: Male

DRUGS (2)
  1. LANTUS [Suspect]
     Active Substance: INSULIN GLARGINE
     Indication: TYPE 2 DIABETES MELLITUS
     Dosage: DOSE-42 UNITS OF LANTUS DAILY,OFTEN TAKE AN ADDITIONAL 21 UNITS AT NIGHT
     Route: 051
     Dates: start: 2017
  2. HUMALOG [Concomitant]
     Active Substance: INSULIN LISPRO
     Route: 065

REACTIONS (3)
  - Product use issue [Unknown]
  - Blood glucose increased [Unknown]
  - Glycosylated haemoglobin increased [Unknown]
